FAERS Safety Report 9830717 (Version 2)
Quarter: 2014Q1

REPORT INFORMATION
  Report Type: Spontaneous
  Country: US (occurrence: US)
  Receive Date: 20140120
  Receipt Date: 20140214
  Transmission Date: 20141002
  Serious: No
  Sender: FDA-Public Use
  Company Number: US-009507513-1401USA008512

PATIENT
  Age: 48 Year
  Sex: Female

DRUGS (2)
  1. OXYTROL FOR WOMEN [Suspect]
     Indication: BLADDER DISORDER
     Dosage: UNK, UNKNOWN
     Route: 062
     Dates: start: 20131212, end: 20131214
  2. VITAMINS (UNSPECIFIED) [Concomitant]
     Indication: PRODUCT USED FOR UNKNOWN INDICATION
     Dosage: UNK, UNKNOWN

REACTIONS (3)
  - Pain [Not Recovered/Not Resolved]
  - Rash [Not Recovered/Not Resolved]
  - Drug ineffective [Unknown]
